FAERS Safety Report 12499148 (Version 1)
Quarter: 2016Q2

REPORT INFORMATION
  Report Type: Spontaneous
  Country: US (occurrence: None)
  Receive Date: 20160624
  Receipt Date: 20160624
  Transmission Date: 20160815
  Serious: Yes (Other)
  Sender: FDA-Public Use
  Company Number: None

PATIENT
  Age: 67 Year
  Sex: Male
  Weight: 88.45 kg

DRUGS (6)
  1. DIOVAN HCT [Concomitant]
     Active Substance: HYDROCHLOROTHIAZIDE\VALSARTAN
  2. XANAX [Concomitant]
     Active Substance: ALPRAZOLAM
  3. NAPROXEN SODIUM. [Concomitant]
     Active Substance: NAPROXEN SODIUM
  4. VIAGRA [Suspect]
     Active Substance: SILDENAFIL CITRATE
     Indication: ERECTILE DYSFUNCTION
     Dosage: VIAGRA, 25 MG ?1 TABLET?AS NEEDED?TAKEN BY MOUTH
     Route: 048
     Dates: start: 20160410, end: 20160605
  5. CHOLECALCIFEROL [Concomitant]
     Active Substance: CHOLECALCIFEROL
  6. ATORVASTATIN [Concomitant]
     Active Substance: ATORVASTATIN

REACTIONS (3)
  - Swelling [None]
  - Visual acuity reduced [None]
  - Optic ischaemic neuropathy [None]

NARRATIVE: CASE EVENT DATE: 20160605
